FAERS Safety Report 8163574-3 (Version None)
Quarter: 2012Q1

REPORT INFORMATION
  Report Type: 
  Country: None (occurrence: None)
  Receive Date: 20120224
  Receipt Date: 20120215
  Transmission Date: 20120608
  Serious: Yes (Life-Threatening, Hospitalization, Other)
  Sender: FDA-Public Use
  Company Number: CA-JNJFOC-20120208591

PATIENT
  Age: 52 Year
  Sex: Male
  Weight: 108 kg

DRUGS (1)
  1. XARELTO [Suspect]
     Indication: PRODUCT USED FOR UNKNOWN INDICATION
     Route: 048

REACTIONS (7)
  - DUODENITIS [None]
  - PNEUMONIA ASPIRATION [None]
  - HAEMOGLOBIN DECREASED [None]
  - HYPOTENSION [None]
  - GASTROINTESTINAL HAEMORRHAGE [None]
  - HAEMATEMESIS [None]
  - EROSIVE OESOPHAGITIS [None]
